FAERS Safety Report 4724370-X (Version None)
Quarter: 2005Q3

REPORT INFORMATION
  Report Type: 
  Country: None (occurrence: None)
  Receive Date: 20050722
  Receipt Date: 20050706
  Transmission Date: 20060218
  Serious: Yes (Hospitalization)
  Sender: FDA-Public Use
  Company Number: 2005MP000183

PATIENT
  Age: 71 Year
  Sex: Female

DRUGS (6)
  1. SALAGEN [Suspect]
     Indication: DRY MOUTH
     Dosage: 15 MG; TAB; PO; QD;
     Route: 048
     Dates: start: 20040624, end: 20050501
  2. BAKUMONDOUTO (BAKUMONDOUTO) [Suspect]
     Indication: PHARYNX DISCOMFORT
     Dosage: 3 GM; TAB; PO; QD
     Route: 048
     Dates: start: 20040829, end: 20050110
  3. BAKUMONDOUTO (BAKUMONDOUTO) [Suspect]
     Indication: PHARYNX DISCOMFORT
     Dosage: 3 GM; TAB; PO; QD
     Route: 048
     Dates: start: 20050217, end: 20050427
  4. BAKUMONDOUTO (BAKUMONDOUTO) [Suspect]
     Indication: COUGH
     Dosage: 9 GM; TAB; PO; QD
     Route: 048
     Dates: start: 20050428, end: 20050501
  5. BONALON (ALENDRONIC ACID) [Concomitant]
  6. SOFT SANTEAR (GENERIC UNKNOWN) [Concomitant]

REACTIONS (12)
  - ASTHMA [None]
  - BLOOD PH DECREASED [None]
  - BRONCHITIS [None]
  - COUGH [None]
  - FEELING ABNORMAL [None]
  - INTERSTITIAL LUNG DISEASE [None]
  - PCO2 INCREASED [None]
  - PO2 INCREASED [None]
  - PYREXIA [None]
  - RESPIRATORY DEPRESSION [None]
  - STRIDOR [None]
  - VIRAL INFECTION [None]
